FAERS Safety Report 17974439 (Version 1)
Quarter: 2020Q3

REPORT INFORMATION
  Report Type: Spontaneous
  Country: US (occurrence: US)
  Receive Date: 20200702
  Receipt Date: 20200702
  Transmission Date: 20201103
  Serious: No
  Sender: FDA-Public Use
  Company Number: US-PFIZER INC-2020251902

PATIENT
  Age: 78 Year
  Sex: Female
  Weight: 71.67 kg

DRUGS (4)
  1. IBRANCE [Suspect]
     Active Substance: PALBOCICLIB
     Indication: BONE CANCER
     Dosage: 125 MG, CYCLIC (1 TABLET IN THE MORNING FOR 21 DAYS AND THEN 7 DAYS OFF BY MOUTH WITH WATER)
     Route: 048
     Dates: start: 20200228, end: 20200630
  2. FASLODEX [Concomitant]
     Active Substance: FULVESTRANT
     Indication: BONE CANCER
     Dosage: UNK (2 INJECTIONS IN EACH HIP ONCE A MONTH)
  3. XGEVA [Concomitant]
     Active Substance: DENOSUMAB
     Indication: BONE DISORDER
     Dosage: UNK (1 INJECTION IN ARM ONCE A MONTH)
  4. LEVOTHYROXINE. [Concomitant]
     Active Substance: LEVOTHYROXINE
     Indication: THYROID DISORDER
     Dosage: UNK (200MG ONCE A WEEK ON SUNDAY, TAKES 100MG DAILY EXCEPT SUNDAY BY MOUTH)
     Route: 048

REACTIONS (3)
  - Product use in unapproved indication [Unknown]
  - Off label use [Unknown]
  - Confusional state [Unknown]
